FAERS Safety Report 6148170-1 (Version None)
Quarter: 2009Q2

REPORT INFORMATION
  Report Type: 
  Country: None (occurrence: None)
  Receive Date: 20090406
  Receipt Date: 20090327
  Transmission Date: 20091009
  Serious: Yes (Hospitalization)
  Sender: FDA-Public Use
  Company Number: WAES 0802USA02223

PATIENT
  Age: 68 Year
  Sex: Male

DRUGS (22)
  1. CAP VORINOSTAT [Suspect]
     Indication: SQUAMOUS CELL CARCINOMA
     Dosage: 400 MG/DAILY PO ; 400 MG/DAILY PO ; 400 MG/DAILY PO
     Route: 048
     Dates: start: 20071207, end: 20071220
  2. CAP VORINOSTAT [Suspect]
     Indication: SQUAMOUS CELL CARCINOMA
     Dosage: 400 MG/DAILY PO ; 400 MG/DAILY PO ; 400 MG/DAILY PO
     Route: 048
     Dates: start: 20080103, end: 20080116
  3. CAP VORINOSTAT [Suspect]
     Indication: SQUAMOUS CELL CARCINOMA
     Dosage: 400 MG/DAILY PO ; 400 MG/DAILY PO ; 400 MG/DAILY PO
     Route: 048
     Dates: start: 20080124, end: 20080206
  4. CARBOPLATIN [Suspect]
     Dosage: 570 MG/1X IV ; 570 MG/1X IV ; 672 MG/1X IV
     Route: 042
     Dates: start: 20071211, end: 20071211
  5. CARBOPLATIN [Suspect]
     Dosage: 570 MG/1X IV ; 570 MG/1X IV ; 672 MG/1X IV
     Route: 042
     Dates: start: 20080103, end: 20080103
  6. CARBOPLATIN [Suspect]
     Dosage: 570 MG/1X IV ; 570 MG/1X IV ; 672 MG/1X IV
     Route: 042
     Dates: start: 20080124, end: 20080124
  7. PACLITAXEL [Suspect]
     Dosage: 400 MG/1X IV ; 400 MG/1X IV ; 400 MG/1X IV
     Route: 042
     Dates: start: 20071211, end: 20071211
  8. PACLITAXEL [Suspect]
     Dosage: 400 MG/1X IV ; 400 MG/1X IV ; 400 MG/1X IV
     Route: 042
     Dates: start: 20080103, end: 20080103
  9. PACLITAXEL [Suspect]
     Dosage: 400 MG/1X IV ; 400 MG/1X IV ; 400 MG/1X IV
     Route: 042
     Dates: start: 20080124, end: 20080124
  10. BARILUX [Concomitant]
  11. BERODUAL [Concomitant]
  12. FORTECORTIN [Concomitant]
  13. IMERON [Concomitant]
  14. METOCLOPRAMIDE [Concomitant]
  15. MUCOSOLVAN [Concomitant]
  16. NEXIUM [Concomitant]
  17. SPIRIVA [Concomitant]
  18. SYMBICORT [Concomitant]
  19. CLEMASTINE FUMARATE [Concomitant]
  20. VIGANTOLETTEN [Concomitant]
  21. ZOFRAN [Concomitant]
  22. RANITIDINE [Concomitant]

REACTIONS (8)
  - DYSPHAGIA [None]
  - MUCOSAL INFLAMMATION [None]
  - NASAL CONGESTION [None]
  - NASOPHARYNGITIS [None]
  - NEUTROPENIA [None]
  - SINUSITIS [None]
  - STOMATITIS [None]
  - THROMBOCYTOPENIA [None]
